FAERS Safety Report 23135567 (Version 5)
Quarter: 2023Q4

REPORT INFORMATION
  Report Type: Spontaneous
  Country: US (occurrence: US)
  Receive Date: 20231101
  Receipt Date: 20231222
  Transmission Date: 20240109
  Serious: Yes (Hospitalization)
  Sender: FDA-Public Use
  Company Number: US-KARYOPHARM-2023KPT002128

PATIENT

DRUGS (4)
  1. XPOVIO [Suspect]
     Active Substance: SELINEXOR
     Indication: Plasma cell myeloma
     Dosage: 80 MG, WEEKLY
     Route: 048
     Dates: end: 2023
  2. XPOVIO [Suspect]
     Active Substance: SELINEXOR
     Dosage: 80 MG, WEEKLY ON DAYS 1, 8 AND 15
     Route: 048
     Dates: start: 202310, end: 202311
  3. XPOVIO [Suspect]
     Active Substance: SELINEXOR
     Dosage: 80 MG, WEEKLY ON DAYS 1, 8 AND 15 OF 28 DAYS
     Route: 048
     Dates: start: 202311
  4. POMALYST [Concomitant]
     Active Substance: POMALIDOMIDE

REACTIONS (7)
  - Infection [Unknown]
  - Dysgeusia [Unknown]
  - Emotional disorder [Unknown]
  - Decreased appetite [Unknown]
  - Nausea [Unknown]
  - Full blood count decreased [Unknown]
  - Product dose omission issue [Unknown]

NARRATIVE: CASE EVENT DATE: 20230101
